FAERS Safety Report 5502209-2 (Version None)
Quarter: 2007Q4

REPORT INFORMATION
  Report Type: 
  Country: None (occurrence: None)
  Receive Date: 20071019
  Receipt Date: 20070809
  Transmission Date: 20080405
  Serious: Yes (Hospitalization)
  Sender: FDA-Public Use
  Company Number: PHEH2007US10961

PATIENT

DRUGS (3)
  1. ZOMETA [Suspect]
     Indication: OSTEITIS DEFORMANS
     Dosage: 200MCG, ONCE, INTRAVENOUS
     Route: 042
     Dates: start: 20070806, end: 20070806
  2. ANGIOTENSIN II ANGAGONISTS (NO INGREDIENTS/SUBSTANCES) [Concomitant]
  3. ANTIHYPERTENSIVES (NO INGREDIENTS/SUBSTANCES) [Concomitant]

REACTIONS (1)
  - HYPOTENSION [None]
